FAERS Safety Report 6786732-9 (Version None)
Quarter: 2010Q3

REPORT INFORMATION
  Report Type: 
  Country: None (occurrence: None)
  Receive Date: 20100623
  Receipt Date: 20100611
  Transmission Date: 20110219
  Serious: Yes (Hospitalization, Other)
  Sender: FDA-Public Use
  Company Number: US-BAYER-201022743NA

PATIENT
  Age: 83 Year
  Sex: Female
  Weight: 74 kg

DRUGS (8)
  1. CIPROFLOXACIN [Suspect]
     Indication: DIVERTICULITIS
     Dosage: TOTAL DAILY DOSE: 100 MG  UNIT DOSE: 500 MG
     Route: 048
     Dates: start: 20100408, end: 20100417
  2. CELECOXIB [Suspect]
     Indication: OSTEOARTHRITIS
     Dates: start: 20080424, end: 20100422
  3. FLAGYL [Suspect]
     Indication: DIVERTICULITIS
     Dosage: TOTAL DAILY DOSE: 1500 MG  UNIT DOSE: 500 MG
     Route: 048
     Dates: start: 20100408, end: 20100417
  4. NEXIUM [Concomitant]
     Indication: PROPHYLAXIS
     Dates: start: 20100424
  5. VANCOMYCIN [Concomitant]
     Indication: COLITIS
     Route: 048
     Dates: start: 20100425, end: 20100508
  6. IBUPROFEN [Suspect]
  7. NAPROXEN [Suspect]
  8. PLACEBO [Suspect]

REACTIONS (4)
  - ABDOMINAL PAIN [None]
  - COLITIS [None]
  - DIARRHOEA [None]
  - NAUSEA [None]
